FAERS Safety Report 8570345-2 (Version None)
Quarter: 2012Q3

REPORT INFORMATION
  Report Type: 
  Country: None (occurrence: None)
  Receive Date: 20120803
  Receipt Date: 20120723
  Transmission Date: 20120928
  Serious: No
  Sender: FDA-Public Use
  Company Number: US-ASTRAZENECA-2012SE51565

PATIENT
  Age: 81 Year
  Sex: Male
  Weight: 81.6 kg

DRUGS (9)
  1. RENVELA [Concomitant]
     Indication: DIALYSIS
  2. NEBULIZER AND COMPRESSOR [Concomitant]
  3. SYMBICORT [Suspect]
     Indication: CHRONIC OBSTRUCTIVE PULMONARY DISEASE
     Dosage: SYMBICORT 80/4.5 MCG TWO PUFFS TWICE DAILY
     Route: 055
  4. GABAPENTIN [Concomitant]
  5. METOPROLOL SUCCINATE [Concomitant]
  6. SYNTHROID [Concomitant]
  7. NEXIUM [Concomitant]
  8. ITRATROPRIUM-ALBUTEROL [Concomitant]
  9. MAGNEBIND [Concomitant]

REACTIONS (3)
  - STRESS [None]
  - OFF LABEL USE [None]
  - DRUG DOSE OMISSION [None]
